FAERS Safety Report 8049972 (Version 2)
Quarter: 2014Q1

REPORT INFORMATION
  Report Type: Spontaneous
  Country: US (occurrence: US)
  Receive Date: 20110722
  Receipt Date: 20140102
  Transmission Date: 20141002
  Serious: Yes (Other)
  Sender: FDA-Public Use
  Company Number: US-BAYER-2011-062499

PATIENT
  Age: 17 Year
  Sex: Female

DRUGS (5)
  1. YAZ [Suspect]
     Dosage: UNK
     Dates: start: 200810, end: 201002
  2. YASMIN [Suspect]
     Dosage: UNK
     Dates: start: 200810, end: 201002
  3. IBUPROFEN [Concomitant]
     Dosage: UNK
     Dates: start: 20091214
  4. VYVANSE [Concomitant]
     Dosage: UNK
     Dates: start: 20091214
  5. PAROXETINE [Concomitant]
     Dosage: 20 MG, UNK

REACTIONS (6)
  - Gallbladder disorder [None]
  - Cholecystitis chronic [None]
  - Injury [None]
  - Pain [None]
  - Emotional distress [None]
  - Anxiety [None]
